FAERS Safety Report 5879412-5 (Version None)
Quarter: 2008Q3

REPORT INFORMATION
  Report Type: 
  Country: None (occurrence: None)
  Receive Date: 20080912
  Receipt Date: 20080904
  Transmission Date: 20090109
  Serious: Yes (Life-Threatening, Disabling)
  Sender: FDA-Public Use
  Company Number: B0535551A

PATIENT
  Sex: Male
  Weight: 104 kg

DRUGS (5)
  1. AVANDIA [Suspect]
     Dosage: 8MG PER DAY
     Route: 048
     Dates: start: 20010801, end: 20070405
  2. METFORMIN [Concomitant]
     Indication: DIABETES MELLITUS
     Dosage: 1000MG PER DAY
     Route: 048
     Dates: start: 20010801
  3. LISINOPRIL [Concomitant]
     Indication: HYPERTENSION
     Route: 048
     Dates: start: 20020301, end: 20070401
  4. ATORVASTATIN [Concomitant]
     Route: 048
     Dates: start: 20020701
  5. GLICLAZIDE [Concomitant]
     Indication: DIABETES MELLITUS
     Dosage: 320MG PER DAY
     Route: 048
     Dates: start: 20020701, end: 20070401

REACTIONS (1)
  - CARDIOMYOPATHY [None]
